FAERS Safety Report 13275813 (Version 1)
Quarter: 2017Q1

REPORT INFORMATION
  Report Type: Spontaneous
  Country: US (occurrence: US)
  Receive Date: 20170227
  Receipt Date: 20170227
  Transmission Date: 20170428
  Serious: Yes (Life-Threatening, Hospitalization)
  Sender: FDA-Public Use
  Company Number: None

PATIENT
  Age: 38 Year
  Sex: Male
  Weight: 101.3 kg

DRUGS (1)
  1. USTEKINUMAB [Suspect]
     Active Substance: USTEKINUMAB
     Indication: PSORIASIS
     Dosage: ?          OTHER FREQUENCY:EVERY 12 WEEKS;?
     Route: 058
     Dates: start: 20140824, end: 20161224

REACTIONS (13)
  - Respiratory symptom [None]
  - Oral pain [None]
  - Marrow hyperplasia [None]
  - Proctalgia [None]
  - Red blood cell sedimentation rate increased [None]
  - Agranulocytosis [None]
  - Bladder disorder [None]
  - Neutropenia [None]
  - Prostatic calcification [None]
  - C-reactive protein increased [None]
  - Pyrexia [None]
  - Cough [None]
  - Rhinorrhoea [None]

NARRATIVE: CASE EVENT DATE: 20170207
